FAERS Safety Report 6242417-9 (Version None)
Quarter: 2009Q2

REPORT INFORMATION
  Report Type: 
  Country: None (occurrence: None)
  Receive Date: 20090622
  Receipt Date: 20090622
  Transmission Date: 20091009
  Serious: Yes (Other)
  Sender: FDA-Public Use
  Company Number: None

PATIENT
  Sex: Male

DRUGS (1)
  1. ZOLPIDEM [Suspect]
     Indication: INSOMNIA
     Dosage: 10MG 1QHS PO
     Route: 048
     Dates: start: 20090608, end: 20090619

REACTIONS (2)
  - DRUG INEFFECTIVE [None]
  - INSOMNIA [None]
